FAERS Safety Report 10221112 (Version 1)
Quarter: 2014Q2

REPORT INFORMATION
  Report Type: Spontaneous
  Country: US (occurrence: US)
  Receive Date: 20140606
  Receipt Date: 20140606
  Transmission Date: 20141212
  Serious: Yes (Other)
  Sender: FDA-Public Use
  Company Number: US-MUNDIPHARMA DS AND PHARMACOVIGILANCE-USA-2014-0114488

PATIENT
  Age: 49 Year
  Sex: Male
  Weight: 104.31 kg

DRUGS (1)
  1. OXYCONTIN (NDA 22-272) [Suspect]
     Indication: PAIN
     Dosage: 80 MG, TID
     Route: 048
     Dates: start: 2007

REACTIONS (3)
  - Cervical vertebral fracture [Unknown]
  - Spinal fracture [Unknown]
  - Road traffic accident [Unknown]
